FAERS Safety Report 24235776 (Version 5)
Quarter: 2024Q4

REPORT INFORMATION
  Report Type: Spontaneous
  Country: US (occurrence: US)
  Receive Date: 20240822
  Receipt Date: 20241226
  Transmission Date: 20250115
  Serious: Yes (Hospitalization)
  Sender: Day One Biopharmaceuticals
  Company Number: US-DAY ONE BIOPHARMACEUTICALS, INC.-2024US000478

PATIENT

DRUGS (2)
  1. OJEMDA [Suspect]
     Active Substance: TOVORAFENIB
     Indication: Astrocytoma malignant
     Dosage: 600 MILLIGRAM, QW
     Route: 048
     Dates: start: 20240530, end: 2024
  2. NIVOLUMAB\RELATLIMAB-RMBW [Suspect]
     Active Substance: NIVOLUMAB\RELATLIMAB-RMBW
     Indication: Astrocytoma malignant
     Dosage: 480 MILLIGRAM
     Route: 042
     Dates: start: 20240424, end: 2024

REACTIONS (6)
  - Drug eruption [Recovered/Resolved]
  - Off label use [Unknown]
  - Cellulitis staphylococcal [Unknown]
  - Abscess limb [Unknown]
  - Cellulitis [Unknown]
  - Disease progression [Unknown]

NARRATIVE: CASE EVENT DATE: 20240101
